FAERS Safety Report 21275307 (Version 13)
Quarter: 2023Q1

REPORT INFORMATION
  Report Type: Report from Study
  Country: PL (occurrence: None)
  Receive Date: 20220831
  Receipt Date: 20230309
  Transmission Date: 20230417
  Serious: Yes (Hospitalization)
  Sender: FDA-Public Use
  Company Number: PL-ROCHE-3077670

PATIENT
  Age: 62 Year
  Sex: Female
  Weight: 61 kg

DRUGS (6)
  1. TIRAGOLUMAB [Suspect]
     Active Substance: TIRAGOLUMAB
     Indication: Squamous cell carcinoma of lung
     Dosage: DOSE OF LAST TIRAGULUMAB ADMIN PRIOR TO AE/SAE IS 840 MG?ON 07/APR/2022, MOST RECENT DOSE OF TIRAGUL
     Route: 042
     Dates: start: 20220407
  2. ATEZOLIZUMAB [Suspect]
     Active Substance: ATEZOLIZUMAB
     Indication: Squamous cell carcinoma of lung
     Dosage: DOSE OF LAST ATEZOLIZUMAB ADMIN PRIOR TO AE/SAE IS 600 MG?ON 07/APR/2022, MOST RECENT DOSE OF ATEZOL
     Route: 041
     Dates: start: 20220407
  3. MAGNE B6 [Concomitant]
     Active Substance: MAGNESIUM\PYRIDOXINE
     Indication: Magnesium deficiency
     Route: 048
     Dates: start: 20220413
  4. OMEPRAZOLE [Concomitant]
     Active Substance: OMEPRAZOLE
     Route: 048
     Dates: start: 20220505
  5. DICLOFENAC SODIUM [Concomitant]
     Active Substance: DICLOFENAC SODIUM
     Indication: Gouty arthritis
     Route: 048
     Dates: start: 20220905, end: 20220907
  6. ROSUVASTATIN CALCIUM [Concomitant]
     Active Substance: ROSUVASTATIN CALCIUM
     Indication: Hypercholesterolaemia
     Route: 048
     Dates: start: 20220711

REACTIONS (4)
  - Pneumonitis [Recovered/Resolved]
  - Sepsis [Not Recovered/Not Resolved]
  - COVID-19 [Recovered/Resolved]
  - Hyperthyroidism [Not Recovered/Not Resolved]

NARRATIVE: CASE EVENT DATE: 20220413
